FAERS Safety Report 9232734 (Version 1)
Quarter: 2013Q1

REPORT INFORMATION
  Report Type: Spontaneous
  Country: US (occurrence: None)
  Receive Date: 20121031
  Receipt Date: 20121031
  Transmission Date: 20140127
  Serious: No
  Sender: FDA-Public Use
  Company Number: PHEH2012US011869

PATIENT
  Age: 47 Year
  Sex: Female

DRUGS (3)
  1. GILENYA (FTY) CAPSULE, 0.5 MG [Suspect]
     Route: 048
     Dates: start: 20110825
  2. SYNTHROID (LEVOTHYROXINE SODIUM) [Concomitant]
  3. VITAMIN D3 (COLECALCIFEROL) [Concomitant]

REACTIONS (1)
  - Muscle spasms [None]
